FAERS Safety Report 4717027-2 (Version None)
Quarter: 2005Q3

REPORT INFORMATION
  Report Type: 
  Country: None (occurrence: None)
  Receive Date: 20050719
  Receipt Date: 20050711
  Transmission Date: 20060218
  Serious: Yes (Other)
  Sender: FDA-Public Use
  Company Number: GB-BRISTOL-MYERS SQUIBB COMPANY-13032495

PATIENT
  Sex: Female
  Weight: 1 kg

DRUGS (2)
  1. CISPLATIN [Suspect]
     Route: 064
     Dates: start: 20050101, end: 20050201
  2. ETOPOSIDE [Suspect]
     Route: 064
     Dates: start: 20050101, end: 20050201

REACTIONS (2)
  - PREGNANCY [None]
  - PREMATURE BABY [None]
